FAERS Safety Report 7262480-6 (Version None)
Quarter: 2011Q1

REPORT INFORMATION
  Report Type: 
  Country: None (occurrence: None)
  Receive Date: 20110130
  Receipt Date: 20101208
  Transmission Date: 20110831
  Serious: No
  Sender: FDA-Public Use
  Company Number: US-ABBOTT-10P-163-0690378-00

PATIENT
  Age: 16 Year
  Sex: Female

DRUGS (4)
  1. IMITREX [Concomitant]
     Indication: MIGRAINE
  2. ZOFRAN [Concomitant]
     Indication: PRODUCT USED FOR UNKNOWN INDICATION
     Dosage: USES OCCASIONALLY
  3. HUMIRA [Suspect]
     Indication: CROHN'S DISEASE
     Dates: start: 20100601
  4. BENTYL [Concomitant]
     Indication: PRODUCT USED FOR UNKNOWN INDICATION

REACTIONS (5)
  - HEADACHE [None]
  - FEELING ABNORMAL [None]
  - OCULAR HYPERAEMIA [None]
  - VISUAL IMPAIRMENT [None]
  - EYE PAIN [None]
